FAERS Safety Report 23528249 (Version 5)
Quarter: 2024Q4

REPORT INFORMATION
  Report Type: Spontaneous
  Country: US (occurrence: US)
  Receive Date: 20240215
  Receipt Date: 20241217
  Transmission Date: 20250115
  Serious: No
  Sender: PFIZER
  Company Number: US-PFIZER INC-202400040872

PATIENT
  Age: 69 Year
  Sex: Female
  Weight: 61.69 kg

DRUGS (2)
  1. BRAFTOVI [Suspect]
     Active Substance: ENCORAFENIB
     Indication: Colon cancer
     Dosage: 75 MG AND TAKES THREE CAPSULES A DAY ONCE A DAY BY MOUTH
     Route: 048
     Dates: start: 202309
  2. BRAFTOVI [Suspect]
     Active Substance: ENCORAFENIB
     Dosage: 4 DF, DAILY (BRAFTOVI 4 TABLET (OF 75 MG) CAPSULE ORAL DAILY
     Route: 048

REACTIONS (2)
  - Pruritus [Not Recovered/Not Resolved]
  - Visual impairment [Not Recovered/Not Resolved]

NARRATIVE: CASE EVENT DATE: 20230901
